FAERS Safety Report 5888022-5 (Version None)
Quarter: 2008Q3

REPORT INFORMATION
  Report Type: 
  Country: None (occurrence: None)
  Receive Date: 20080918
  Receipt Date: 20080916
  Transmission Date: 20090109
  Serious: Yes (Other)
  Sender: FDA-Public Use
  Company Number: A0692193A

PATIENT
  Sex: Female

DRUGS (3)
  1. ALLI [Suspect]
     Indication: DRUG USE FOR UNKNOWN INDICATION
     Dates: start: 20071017
  2. DIABETES MEDICATION [Suspect]
  3. UNSPECIFIED MEDICATION [Suspect]

REACTIONS (15)
  - DIABETES MELLITUS [None]
  - DISCOMFORT [None]
  - DRUG INEFFECTIVE [None]
  - EXOSTOSIS [None]
  - FREQUENT BOWEL MOVEMENTS [None]
  - GASTROINTESTINAL DISORDER [None]
  - HYPERPHAGIA [None]
  - IRRITABLE BOWEL SYNDROME [None]
  - LIMB INJURY [None]
  - MENORRHAGIA [None]
  - PLANTAR FASCIITIS [None]
  - STRESS [None]
  - THERAPEUTIC RESPONSE UNEXPECTED [None]
  - WEIGHT FLUCTUATION [None]
  - WEIGHT INCREASED [None]
